FAERS Safety Report 13518186 (Version 2)
Quarter: 2017Q4

REPORT INFORMATION
  Report Type: Spontaneous
  Country: US (occurrence: US)
  Receive Date: 20170505
  Receipt Date: 20171114
  Transmission Date: 20180320
  Serious: Yes (Hospitalization)
  Sender: FDA-Public Use
  Company Number: US-LEADIANT BIOSCIENCES INC-2017STPI000335

PATIENT
  Sex: Male

DRUGS (6)
  1. LABETALOL [Concomitant]
     Active Substance: LABETALOL\LABETALOL HYDROCHLORIDE
  2. TOBRAMYCIN. [Concomitant]
     Active Substance: TOBRAMYCIN
  3. ADAGEN [Suspect]
     Active Substance: PEGADEMASE BOVINE
     Indication: BRONCHIECTASIS
     Dosage: 750 IU, BIW
     Route: 030
     Dates: start: 20140822
  4. SODIUM CITRATE. [Concomitant]
     Active Substance: SODIUM CITRATE
  5. BACTRIM [Concomitant]
     Active Substance: SULFAMETHOXAZOLE\TRIMETHOPRIM
  6. PREVACID [Concomitant]
     Active Substance: LANSOPRAZOLE

REACTIONS (1)
  - Lung infection [Unknown]
